FAERS Safety Report 6932987-7 (Version None)
Quarter: 2010Q3

REPORT INFORMATION
  Report Type: 
  Country: None (occurrence: None)
  Receive Date: 20100818
  Receipt Date: 20100818
  Transmission Date: 20110219
  Serious: No
  Sender: FDA-Public Use
  Company Number: None

PATIENT
  Age: 20 Year
  Sex: Female

DRUGS (4)
  1. AZITHROMYCIN [Suspect]
     Dates: start: 20081009, end: 20081010
  2. IBUPROFEN [Suspect]
     Dates: start: 20081005, end: 20081011
  3. BENADRYL [Concomitant]
  4. ACETAMINOPHEN [Concomitant]

REACTIONS (17)
  - ACUTE RESPIRATORY DISTRESS SYNDROME [None]
  - ANTINUCLEAR ANTIBODY POSITIVE [None]
  - CARDIO-RESPIRATORY ARREST [None]
  - CARDIOLIPIN ANTIBODY POSITIVE [None]
  - CHOLESTASIS [None]
  - CONDITION AGGRAVATED [None]
  - COUGH [None]
  - DISEASE RECURRENCE [None]
  - HEPATITIS [None]
  - INTERNATIONAL NORMALISED RATIO INCREASED [None]
  - LIVER DISORDER [None]
  - MULTI-ORGAN FAILURE [None]
  - ORTHOSTATIC HYPOTENSION [None]
  - PNEUMOTHORAX [None]
  - RESPIRATORY FAILURE [None]
  - TOXIC EPIDERMAL NECROLYSIS [None]
  - TOXIC SHOCK SYNDROME [None]
